FAERS Safety Report 5027671-3 (Version None)
Quarter: 2006Q2

REPORT INFORMATION
  Report Type: 
  Country: None (occurrence: None)
  Receive Date: 20060616
  Receipt Date: 20060324
  Transmission Date: 20061013
  Serious: Yes (Life-Threatening, Hospitalization)
  Sender: FDA-Public Use
  Company Number: US-BRISTOL-MYERS SQUIBB COMPANY-13326608

PATIENT
  Age: 65 Year
  Sex: Male

DRUGS (5)
  1. ERBITUX [Suspect]
     Indication: SQUAMOUS CELL CARCINOMA
     Dosage: LOADING DOSE (708 MG). DISCONTINUED AFTER 16 CC.
     Route: 042
     Dates: start: 20060314, end: 20060314
  2. RADIATION THERAPY [Concomitant]
  3. TYLENOL (CAPLET) [Concomitant]
  4. DECADRON [Concomitant]
  5. BENADRYL [Concomitant]
     Route: 042

REACTIONS (2)
  - BRONCHOSPASM [None]
  - RESPIRATORY ARREST [None]
